FAERS Safety Report 6222695-2 (Version None)
Quarter: 2009Q2

REPORT INFORMATION
  Report Type: 
  Country: None (occurrence: None)
  Receive Date: 20090611
  Receipt Date: 20090609
  Transmission Date: 20091009
  Serious: Yes (Other)
  Sender: FDA-Public Use
  Company Number: A0789725A

PATIENT
  Age: 75 Year
  Sex: Female

DRUGS (3)
  1. ALLI [Suspect]
  2. HYZAAR [Concomitant]
     Indication: HYPERTENSION
     Route: 048
  3. MULTI-VITAMIN [Concomitant]

REACTIONS (4)
  - ABNORMAL FAECES [None]
  - FREQUENT BOWEL MOVEMENTS [None]
  - HAEMORRHOIDAL HAEMORRHAGE [None]
  - RECTAL HAEMORRHAGE [None]
